FAERS Safety Report 12228150 (Version 1)
Quarter: 2016Q1

REPORT INFORMATION
  Report Type: Spontaneous
  Country: US (occurrence: None)
  Receive Date: 20160330
  Receipt Date: 20160330
  Transmission Date: 20160526
  Serious: Yes (Hospitalization, Other)
  Sender: FDA-Public Use
  Company Number: None

PATIENT
  Age: 83 Year
  Sex: Female
  Weight: 56.7 kg

DRUGS (11)
  1. METROPROL [Concomitant]
  2. PROLIA [Suspect]
     Active Substance: DENOSUMAB
     Indication: OSTEOPOROSIS
     Dates: start: 20160129
  3. DIGOXIN. [Concomitant]
     Active Substance: DIGOXIN
  4. NEXIUM [Concomitant]
     Active Substance: ESOMEPRAZOLE MAGNESIUM
  5. LOVAZA [Concomitant]
     Active Substance: OMEGA-3-ACID ETHYL ESTERS
  6. CALCIUM WITH VITAMIN D [Concomitant]
     Active Substance: CALCIUM\VITAMIN D
  7. COUMADIN [Concomitant]
     Active Substance: WARFARIN SODIUM
  8. LASIX [Concomitant]
     Active Substance: FUROSEMIDE
  9. DILANTIN [Concomitant]
     Active Substance: PHENYTOIN
  10. PACEMAKER [Concomitant]
  11. VITAMIN B12 [Concomitant]
     Active Substance: CYANOCOBALAMIN

REACTIONS (9)
  - Walking aid user [None]
  - Weight bearing difficulty [None]
  - Impaired driving ability [None]
  - Bone pain [None]
  - Muscle spasms [None]
  - Pain in extremity [None]
  - Heart rate increased [None]
  - Joint lock [None]
  - Musculoskeletal stiffness [None]

NARRATIVE: CASE EVENT DATE: 20160215
